FAERS Safety Report 5646176-X (Version None)
Quarter: 2008Q1

REPORT INFORMATION
  Report Type: 
  Country: None (occurrence: None)
  Receive Date: 20080229
  Receipt Date: 20080217
  Transmission Date: 20080703
  Serious: Yes (Other)
  Sender: FDA-Public Use
  Company Number: US-PFIZER INC-2008017842

PATIENT
  Sex: Female
  Weight: 87.727 kg

DRUGS (6)
  1. CHANTIX [Suspect]
     Indication: EX-SMOKER
  2. INSULIN [Concomitant]
  3. WARFARIN SODIUM [Concomitant]
  4. VICODIN [Concomitant]
  5. FLEXERIL [Concomitant]
  6. OMEPRAZOLE [Concomitant]

REACTIONS (16)
  - ABNORMAL DREAMS [None]
  - AGGRESSION [None]
  - ANGER [None]
  - ANTISOCIAL BEHAVIOUR [None]
  - DRUG WITHDRAWAL SYNDROME [None]
  - EPISTAXIS [None]
  - FEELING ABNORMAL [None]
  - HOMICIDAL IDEATION [None]
  - HYPOVENTILATION [None]
  - INCORRECT DOSE ADMINISTERED [None]
  - INFLUENZA [None]
  - IRRITABILITY [None]
  - MOOD SWINGS [None]
  - SCREAMING [None]
  - SPEECH DISORDER [None]
  - WEIGHT ABNORMAL [None]
